FAERS Safety Report 9175403 (Version 1)
Quarter: 2013Q1

REPORT INFORMATION
  Report Type: Spontaneous
  Country: US (occurrence: US)
  Receive Date: 20130320
  Receipt Date: 20130320
  Transmission Date: 20140127
  Serious: No
  Sender: FDA-Public Use
  Company Number: US-ASTRAZENECA-2013SE11682

PATIENT
  Sex: Female

DRUGS (6)
  1. NEXIUM [Suspect]
     Indication: BARRETT^S OESOPHAGUS
     Route: 048
  2. NEXIUM [Suspect]
     Indication: HYPERCHLORHYDRIA
     Route: 048
  3. NEXIUM [Suspect]
     Indication: BARRETT^S OESOPHAGUS
     Route: 048
  4. NEXIUM [Suspect]
     Indication: HYPERCHLORHYDRIA
     Route: 048
  5. NEXIUM [Suspect]
     Indication: BARRETT^S OESOPHAGUS
     Route: 048
  6. NEXIUM [Suspect]
     Indication: HYPERCHLORHYDRIA
     Route: 048

REACTIONS (6)
  - Gastroenteritis viral [Unknown]
  - Bone disorder [Unknown]
  - Abdominal pain upper [Unknown]
  - Diarrhoea [Unknown]
  - Off label use [Unknown]
  - Intentional drug misuse [Unknown]
